FAERS Safety Report 4961515-0 (Version None)
Quarter: 2006Q1

REPORT INFORMATION
  Report Type: 
  Country: None (occurrence: None)
  Receive Date: 20060201
  Receipt Date: 20051107
  Transmission Date: 20060701
  Serious: No
  Sender: FDA-Public Use
  Company Number: 2005PV003918

PATIENT
  Age: 71 Year
  Sex: Female
  Weight: 89.3586 kg

DRUGS (5)
  1. BYETTA [Suspect]
     Indication: DIABETES MELLITUS NON-INSULIN-DEPENDENT
     Dosage: 5 MCG; BID; SC
     Route: 058
     Dates: start: 20051102, end: 20051102
  2. METFORMIN [Concomitant]
  3. NOVOLIN 70/30 [Concomitant]
  4. GEMFIBROZIL [Concomitant]
  5. DIGOXIN [Concomitant]

REACTIONS (3)
  - BLOOD MAGNESIUM DECREASED [None]
  - HEART RATE INCREASED [None]
  - HYPERHIDROSIS [None]
